FAERS Safety Report 8710385 (Version 2)
Quarter: 2012Q4

REPORT INFORMATION
  Report Type: 
  Country: JP (occurrence: JP)
  Receive Date: 20120807
  Receipt Date: 20120921
  Transmission Date: 20130627
  Serious: No
  Sender: FDA-Public Use
  Company Number: JP-ELI_LILLY_AND_COMPANY-JP201208000433

PATIENT
  Sex: Male

DRUGS (5)
  1. ALIMTA [Suspect]
     Indication: LUNG ADENOCARCINOMA
     Dosage: 500 mg/m2, UNK
     Route: 042
  2. AVASTIN [Concomitant]
     Indication: LUNG ADENOCARCINOMA
     Dosage: 15 mg/kg, UNK
     Route: 042
  3. CARBOPLATIN [Concomitant]
     Indication: LUNG ADENOCARCINOMA
     Dosage: UNK
     Route: 042
  4. FOLIC ACID [Concomitant]
  5. VITAMIN B12 [Concomitant]

REACTIONS (2)
  - Atrioventricular block [Recovered/Resolved]
  - Chest pain [Recovered/Resolved]
